FAERS Safety Report 6773550-0 (Version None)
Quarter: 2010Q2

REPORT INFORMATION
  Report Type: 
  Country: None (occurrence: None)
  Receive Date: 20100616
  Receipt Date: 20100609
  Transmission Date: 20101027
  Serious: Yes (Other)
  Sender: FDA-Public Use
  Company Number: US-AMGEN-KDC407087

PATIENT
  Age: 14 Year
  Sex: Female
  Weight: 60.2 kg

DRUGS (8)
  1. ENBREL [Suspect]
     Indication: JUVENILE ARTHRITIS
     Route: 058
     Dates: start: 20100101, end: 20100201
  2. ZYRTEC [Concomitant]
     Route: 048
  3. ADVAIR DISKUS 100/50 [Concomitant]
  4. MELOXICAM [Concomitant]
     Route: 048
     Dates: start: 20090801
  5. ELAVIL [Concomitant]
     Route: 048
  6. METHOTREXATE [Concomitant]
     Route: 058
     Dates: start: 20070801
  7. LEUCOVORIN CALCIUM [Concomitant]
     Route: 048
  8. RHINOCORT [Concomitant]

REACTIONS (1)
  - AUTOIMMUNE DISORDER [None]
